FAERS Safety Report 17810840 (Version 5)
Quarter: 2020Q4

REPORT INFORMATION
  Report Type: Report from Study
  Country: US (occurrence: US)
  Receive Date: 20200521
  Receipt Date: 20201012
  Transmission Date: 20210113
  Serious: Yes (Other)
  Sender: FDA-Public Use
  Company Number: US-TEVA-2020-US-1238351

PATIENT
  Sex: Female

DRUGS (1)
  1. CLOZAPINE. [Suspect]
     Active Substance: CLOZAPINE
     Dosage: FORM OF ADMIN: DISINTEGRATING TABLET
     Route: 048

REACTIONS (2)
  - Granulocytopenia [Unknown]
  - Neutrophil count abnormal [Unknown]
